FAERS Safety Report 11707093 (Version 1)
Quarter: 2015Q4

REPORT INFORMATION
  Report Type: Spontaneous
  Country: AU (occurrence: AU)
  Receive Date: 20151106
  Receipt Date: 20151106
  Transmission Date: 20160304
  Serious: Yes (Other)
  Sender: FDA-Public Use
  Company Number: AU-DEP_12980_2015

PATIENT
  Sex: Female

DRUGS (2)
  1. FENTANYL (FENTANYL) [Concomitant]
     Active Substance: FENTANYL
     Dosage: DF
  2. PALEXIA [Suspect]
     Active Substance: TAPENTADOL HYDROCHLORIDE
     Indication: PRODUCT USED FOR UNKNOWN INDICATION
     Dosage: UNK

REACTIONS (1)
  - Circulatory collapse [Unknown]
